FAERS Safety Report 5912218-7 (Version None)
Quarter: 2008Q4

REPORT INFORMATION
  Report Type: 
  Country: None (occurrence: None)
  Receive Date: 20081008
  Receipt Date: 20080929
  Transmission Date: 20090506
  Serious: Yes (Other)
  Sender: FDA-Public Use
  Company Number: DE-JNJFOC-20080906724

PATIENT
  Age: 24 Year
  Sex: Male
  Weight: 67 kg

DRUGS (3)
  1. INVEGA [Suspect]
     Indication: SCHIZOPHRENIA, PARANOID TYPE
     Route: 048
  2. AKINETON [Concomitant]
     Indication: SCHIZOPHRENIA, PARANOID TYPE
     Route: 048
  3. PANTOZOL [Concomitant]
     Indication: PROPHYLAXIS
     Route: 048

REACTIONS (1)
  - PULMONARY EMBOLISM [None]
